FAERS Safety Report 6698699-2 (Version None)
Quarter: 2010Q2

REPORT INFORMATION
  Report Type: 
  Country: None (occurrence: None)
  Receive Date: 20100427
  Receipt Date: 20090812
  Transmission Date: 20101027
  Serious: No
  Sender: FDA-Public Use
  Company Number: US-ASTRAZENECA-2009SE07940

PATIENT
  Age: 80 Year
  Sex: Female
  Weight: 84.8 kg

DRUGS (3)
  1. ZOMIG [Suspect]
     Indication: MIGRAINE
     Route: 048
  2. FASLODEX [Suspect]
     Indication: BREAST CANCER
     Route: 030
  3. XANAX [Concomitant]

REACTIONS (2)
  - MIGRAINE [None]
  - VOMITING [None]
